FAERS Safety Report 18694852 (Version 2)
Quarter: 2021Q1

REPORT INFORMATION
  Report Type: Spontaneous
  Country: US (occurrence: US)
  Receive Date: 20210104
  Receipt Date: 20210205
  Transmission Date: 20210419
  Serious: No
  Sender: FDA-Public Use
  Company Number: US-ASTRAZENECA-2020SF68597

PATIENT
  Age: 702 Month
  Sex: Female
  Weight: 140.6 kg

DRUGS (5)
  1. BYDUREON BCISE [Suspect]
     Active Substance: EXENATIDE
     Indication: TYPE 2 DIABETES MELLITUS
     Dosage: ONCE A WEEK
     Route: 065
  2. LISINOPRIL HCTZ [Concomitant]
     Active Substance: HYDROCHLOROTHIAZIDE\LISINOPRIL
     Indication: BLOOD PRESSURE MEASUREMENT
     Dosage: 10/12.5MG DAILY
  3. GIIMIPERIDE [Concomitant]
     Indication: DIABETES MELLITUS
  4. VITAMIN D [Concomitant]
     Active Substance: VITAMIN D NOS
  5. SYNTHROID [Concomitant]
     Active Substance: LEVOTHYROXINE SODIUM
     Indication: IODINE UPTAKE INCREASED

REACTIONS (5)
  - Device leakage [Unknown]
  - Injection site haemorrhage [Unknown]
  - Device malfunction [Unknown]
  - Weight increased [Unknown]
  - Weight decreased [Recovered/Resolved]

NARRATIVE: CASE EVENT DATE: 201912
